FAERS Safety Report 12193833 (Version 8)
Quarter: 2017Q3

REPORT INFORMATION
  Report Type: Report from Study
  Country: IE (occurrence: IE)
  Receive Date: 20160321
  Receipt Date: 20170821
  Transmission Date: 20171127
  Serious: Yes (Life-Threatening, Hospitalization, Other)
  Sender: FDA-Public Use
  Company Number: IE-AMGEN-IRLSL2016033753

PATIENT
  Age: 63 Year
  Sex: Female

DRUGS (6)
  1. PROLIA [Suspect]
     Active Substance: DENOSUMAB
     Indication: OSTEOPOROSIS
     Dosage: 60 MG, UNK
     Route: 030
     Dates: start: 20160208, end: 20160208
  2. PNEUMOCOCCAL VACCINE POLYVALENT NOS [Concomitant]
     Active Substance: PNEUMOCOCCAL VACCINE POLYVALENT
     Dosage: UNK
     Route: 030
     Dates: start: 20160208
  3. FOLIC ACID. [Concomitant]
     Active Substance: FOLIC ACID
     Indication: RHEUMATOID ARTHRITIS
     Dosage: 10 MG, QWK
     Route: 048
     Dates: start: 2004
  4. IDEOS [Concomitant]
     Active Substance: CALCIUM CARBONATE\CHOLECALCIFEROL
     Indication: OSTEOPOROSIS
     Dosage: UNK, QD
     Route: 048
     Dates: start: 2004
  5. DICLAC [Suspect]
     Active Substance: DICLOFENAC
     Indication: ARTHRALGIA
     Dosage: 150 MG, QD
     Route: 048
     Dates: start: 20160209
  6. METHOTREXATE. [Concomitant]
     Active Substance: METHOTREXATE
     Indication: RHEUMATOID ARTHRITIS
     Dosage: 12.5 MG, QWK
     Route: 048
     Dates: start: 2004

REACTIONS (16)
  - Discoloured vomit [Recovering/Resolving]
  - Faeces discoloured [Recovering/Resolving]
  - Arthralgia [Recovering/Resolving]
  - Injection site swelling [Recovered/Resolved]
  - Injection site pain [Recovered/Resolved]
  - Abdominal pain upper [Recovering/Resolving]
  - Injection site erythema [Recovered/Resolved]
  - Feeling abnormal [Recovering/Resolving]
  - Pain [Recovering/Resolving]
  - Incorrect route of drug administration [Unknown]
  - Internal haemorrhage [Recovered/Resolved]
  - Syncope [Recovering/Resolving]
  - Diarrhoea [Recovering/Resolving]
  - Gait disturbance [Recovering/Resolving]
  - Joint swelling [Recovering/Resolving]
  - Fatigue [Recovering/Resolving]

NARRATIVE: CASE EVENT DATE: 2016
